FAERS Safety Report 7510940-2 (Version None)
Quarter: 2011Q2

REPORT INFORMATION
  Report Type: 
  Country: None (occurrence: None)
  Receive Date: 20110531
  Receipt Date: 20110519
  Transmission Date: 20111010
  Serious: No
  Sender: FDA-Public Use
  Company Number: US-ROXANE LABORATORIES, INC.-2011-RO-00707RO

PATIENT
  Age: 62 Year
  Sex: Female

DRUGS (5)
  1. LORAZEPAM [Concomitant]
  2. HALDOL [Concomitant]
     Dosage: 3 MG
  3. LITHIUM CARBONATE [Suspect]
     Indication: BIPOLAR DISORDER
     Dosage: 300 MG
     Route: 048
  4. LEXAPRO [Concomitant]
     Dosage: 10 MG
  5. TEGRETOL [Concomitant]
     Indication: CONVULSION
     Dosage: 600 MG

REACTIONS (1)
  - AMNESIA [None]
